FAERS Safety Report 16804067 (Version 1)
Quarter: 2019Q3

REPORT INFORMATION
  Report Type: Spontaneous
  Country: US (occurrence: US)
  Receive Date: 20190913
  Receipt Date: 20190913
  Transmission Date: 20191005
  Serious: Yes (Death, Hospitalization)
  Sender: FDA-Public Use
  Company Number: US-TORRENT-00008551

PATIENT
  Sex: Female
  Weight: 81 kg

DRUGS (3)
  1. LOSARTAN. [Suspect]
     Active Substance: LOSARTAN
     Indication: HYPERTENSION
     Dosage: ONCE DAILY
     Route: 048
     Dates: start: 2017
  2. INSULIN [Concomitant]
     Active Substance: INSULIN NOS
     Indication: DIABETES MELLITUS
     Dosage: UNKNOWN
  3. METOPROLOL. [Concomitant]
     Active Substance: METOPROLOL
     Indication: DIABETES MELLITUS
     Dosage: UNKNOWN

REACTIONS (6)
  - Feeling cold [Unknown]
  - Pyrexia [Unknown]
  - Gait disturbance [Unknown]
  - Myocardial infarction [Fatal]
  - Dizziness [Unknown]
  - Balance disorder [Unknown]
